FAERS Safety Report 10718040 (Version 2)
Quarter: 2015Q1

REPORT INFORMATION
  Report Type: Spontaneous
  Country: US (occurrence: US)
  Receive Date: 20150117
  Receipt Date: 20150121
  Transmission Date: 20150721
  Serious: Yes (Death, Other)
  Sender: FDA-Public Use
  Company Number: US-ASTRAZENECA-2015SE03400

PATIENT
  Age: 60 Year
  Sex: Female
  Weight: 50.8 kg

DRUGS (6)
  1. PRILOSEC [Suspect]
     Active Substance: OMEPRAZOLE MAGNESIUM
     Indication: DYSPEPSIA
     Route: 048
  2. POTASSIUM [Concomitant]
     Active Substance: POTASSIUM
     Indication: BLOOD POTASSIUM DECREASED
  3. NEXIUM [Suspect]
     Active Substance: ESOMEPRAZOLE MAGNESIUM
     Indication: DYSPEPSIA
     Dosage: BID
     Route: 048
  4. VICODIN [Concomitant]
     Active Substance: ACETAMINOPHEN\HYDROCODONE BITARTRATE
     Indication: PAIN
  5. PRILOSEC [Suspect]
     Active Substance: OMEPRAZOLE MAGNESIUM
     Indication: DYSPEPSIA
     Route: 048
  6. NEXIUM [Suspect]
     Active Substance: ESOMEPRAZOLE MAGNESIUM
     Indication: DYSPEPSIA
     Dosage: BID
     Route: 048

REACTIONS (8)
  - Death [Fatal]
  - Chronic lymphocytic leukaemia [Not Recovered/Not Resolved]
  - Paget^s disease of nipple [Unknown]
  - Platelet count decreased [Recovered/Resolved]
  - Hip fracture [Unknown]
  - Off label use [Unknown]
  - Breast cancer [Unknown]
  - Helicobacter test positive [Unknown]

NARRATIVE: CASE EVENT DATE: 1991
